FAERS Safety Report 6870531-3 (Version None)
Quarter: 2010Q3

REPORT INFORMATION
  Report Type: 
  Country: None (occurrence: None)
  Receive Date: 20100723
  Receipt Date: 20100714
  Transmission Date: 20110219
  Serious: No
  Sender: FDA-Public Use
  Company Number: 2009BI013071

PATIENT
  Age: 32 Year
  Sex: Female

DRUGS (5)
  1. TYSABRI [Suspect]
     Indication: MULTIPLE SCLEROSIS
     Route: 042
     Dates: start: 20090129
  2. TYSABRI [Suspect]
     Route: 042
     Dates: start: 20050113, end: 20050113
  3. TYSABRI [Suspect]
     Route: 042
     Dates: start: 20061013, end: 20070214
  4. AVONEX [Concomitant]
     Indication: MULTIPLE SCLEROSIS
     Route: 030
     Dates: start: 20000101
  5. AVONEX [Concomitant]
     Route: 030
     Dates: start: 20070501

REACTIONS (3)
  - DRUG INEFFECTIVE [None]
  - GAIT DISTURBANCE [None]
  - MEMORY IMPAIRMENT [None]
